FAERS Safety Report 18014168 (Version 3)
Quarter: 2022Q4

REPORT INFORMATION
  Report Type: Report from Study
  Country: US (occurrence: US)
  Receive Date: 20200713
  Receipt Date: 20221029
  Transmission Date: 20230113
  Serious: Yes (Hospitalization)
  Sender: FDA-Public Use
  Company Number: US-NOVARTISPH-NVSC2020US192631

PATIENT
  Sex: Female
  Weight: 58.51 kg

DRUGS (3)
  1. XIIDRA [Suspect]
     Active Substance: LIFITEGRAST
     Indication: Product used for unknown indication
     Dosage: UNK
     Route: 065
  2. XIIDRA [Suspect]
     Active Substance: LIFITEGRAST
     Dosage: 5 ML, BID
     Route: 047
  3. XIIDRA [Suspect]
     Active Substance: LIFITEGRAST
     Dosage: 1 DRP, BID
     Route: 047
     Dates: start: 20200402

REACTIONS (3)
  - Cerebral haemorrhage [Unknown]
  - Amnesia [Unknown]
  - Erythema of eyelid [Not Recovered/Not Resolved]
